FAERS Safety Report 17311600 (Version 1)
Quarter: 2020Q1

REPORT INFORMATION
  Report Type: Spontaneous
  Country: US (occurrence: US)
  Receive Date: 20200123
  Receipt Date: 20200123
  Transmission Date: 20200409
  Serious: No
  Sender: FDA-Public Use
  Company Number: US-ROCHE-2261708

PATIENT

DRUGS (4)
  1. METHOTREXATE. [Concomitant]
     Active Substance: METHOTREXATE
  2. ENBREL [Concomitant]
     Active Substance: ETANERCEPT
  3. RITUXIMAB. [Suspect]
     Active Substance: RITUXIMAB
     Indication: PRODUCT USED FOR UNKNOWN INDICATION
     Route: 065
  4. ARAVA [Concomitant]
     Active Substance: LEFLUNOMIDE

REACTIONS (2)
  - Drug ineffective [Unknown]
  - No adverse event [Unknown]
